FAERS Safety Report 5050371-0 (Version None)
Quarter: 2006Q3

REPORT INFORMATION
  Report Type: 
  Country: None (occurrence: None)
  Receive Date: 20060707
  Receipt Date: 20060626
  Transmission Date: 20061208
  Serious: Yes (Disabling, Other)
  Sender: FDA-Public Use
  Company Number: 2006072644

PATIENT
  Age: 40 Year
  Sex: Male

DRUGS (1)
  1. LISTERINE  (MENTHOL, METHYL SALICYLATE, EUCALYPTOL, THYMOL) [Suspect]
     Indication: DENTAL DISORDER PROPHYLAXIS
     Dosage: 1 CAP BID, ORAL
     Route: 048
     Dates: end: 20050701

REACTIONS (4)
  - BLOOD CHOLESTEROL INCREASED [None]
  - BLOOD TRIGLYCERIDES INCREASED [None]
  - MYOCARDIAL INFARCTION [None]
  - PALPITATIONS [None]
